FAERS Safety Report 5805201-3 (Version None)
Quarter: 2008Q3

REPORT INFORMATION
  Report Type: 
  Country: None (occurrence: None)
  Receive Date: 20080707
  Receipt Date: 20080630
  Transmission Date: 20090109
  Serious: Yes (Other)
  Sender: FDA-Public Use
  Company Number: 2008SP009124

PATIENT
  Age: 48 Year
  Sex: Male

DRUGS (2)
  1. PEG-INTRON [Suspect]
     Indication: HEPATITIS C
     Dosage: ; SC
     Route: 058
     Dates: start: 20080506
  2. REBETOL [Suspect]
     Indication: HEPATITIS C
     Dosage: ; PO
     Route: 048
     Dates: start: 20080506

REACTIONS (11)
  - ABDOMINAL PAIN [None]
  - ANOREXIA [None]
  - ASTHENIA [None]
  - DEHYDRATION [None]
  - DEPRESSION [None]
  - FATIGUE [None]
  - INFLUENZA LIKE ILLNESS [None]
  - INTESTINAL ULCER [None]
  - NAUSEA [None]
  - PAIN [None]
  - VASCULITIS [None]
